FAERS Safety Report 6898617-8 (Version None)
Quarter: 2010Q3

REPORT INFORMATION
  Report Type: 
  Country: None (occurrence: None)
  Receive Date: 20100802
  Receipt Date: 20071104
  Transmission Date: 20110219
  Serious: No
  Sender: FDA-Public Use
  Company Number: US-PFIZER INC-2007092352

PATIENT
  Sex: Female
  Weight: 65.909 kg

DRUGS (3)
  1. LYRICA [Suspect]
     Indication: FIBROMYALGIA
     Dates: start: 20071001
  2. CYMBALTA [Concomitant]
     Indication: DEPRESSION
  3. VALIUM [Concomitant]
     Indication: INSOMNIA

REACTIONS (1)
  - OROPHARYNGEAL BLISTERING [None]
